FAERS Safety Report 6498726-1 (Version None)
Quarter: 2009Q4

REPORT INFORMATION
  Report Type: 
  Country: None (occurrence: None)
  Receive Date: 20091127
  Receipt Date: 20090623
  Transmission Date: 20100525
  Serious: Yes (Other)
  Sender: FDA-Public Use
  Company Number: 287260

PATIENT
  Age: 71 Year
  Sex: Female
  Weight: 71.7 kg

DRUGS (1)
  1. NOVOLOG MIX 70/30 [Suspect]
     Indication: DIABETES MELLITUS
     Dosage: SUBCUTANEOUS
     Route: 058
     Dates: start: 20090430

REACTIONS (2)
  - BLOOD GLUCOSE DECREASED [None]
  - DEVICE MALFUNCTION [None]
